FAERS Safety Report 5018007-2 (Version None)
Quarter: 2006Q2

REPORT INFORMATION
  Report Type: 
  Country: None (occurrence: None)
  Receive Date: 20060530
  Receipt Date: 20050125
  Transmission Date: 20061013
  Serious: Yes (Other)
  Sender: FDA-Public Use
  Company Number: 2005019659

PATIENT
  Age: 60 Year
  Sex: Female
  Weight: 37.5 kg

DRUGS (6)
  1. LYRICA [Suspect]
     Indication: NEURALGIA
     Dosage: (75 MG), ORAL
     Route: 048
     Dates: start: 20040809
  2. B-KOMPLEX ^LECIVA^ (CALCIUM PANTOTHENATE, NICOTINAMIDE, PYRIDOXINE HYD [Concomitant]
  3. ACETAMINOPHEN [Concomitant]
  4. FENTANYL [Concomitant]
  5. FORCEVAL (AMINO ACIDS NOS, ELECTROLYTES NOS, FERROUS FUMARATE, NICOTIN [Concomitant]
  6. ENSURE (AMINO ACIDS NOS, MINERALS NOS, VITAMINS NOS) [Concomitant]

REACTIONS (1)
  - LOSS OF CONSCIOUSNESS [None]
